FAERS Safety Report 9807616 (Version 1)
Quarter: 2014Q1

REPORT INFORMATION
  Report Type: Spontaneous
  Country: US (occurrence: US)
  Receive Date: 20140110
  Receipt Date: 20140110
  Transmission Date: 20141002
  Serious: No
  Sender: FDA-Public Use
  Company Number: US-SANOFI-AVENTIS-2013SA063875

PATIENT
  Sex: Female

DRUGS (11)
  1. PLAVIX [Suspect]
     Indication: CARDIAC DISORDER
     Route: 065
     Dates: start: 200808
  2. PLAVIX [Suspect]
     Indication: CARDIAC DISORDER
     Route: 065
     Dates: start: 20130617
  3. PRAVACHOL [Suspect]
     Indication: CARDIAC DISORDER
     Dosage: FREQUENCY- IN EVENING
     Route: 065
     Dates: start: 200808
  4. ISOSORBIDE [Concomitant]
     Dosage: FREQUENCY- IN MORNING
  5. ASPIRIN [Concomitant]
     Dosage: FREQUENCY- IN MORNING
  6. LISINOPRIL [Concomitant]
     Dosage: FREQUENCY- IN MORNING
  7. ISOSORBIDE MONONITRATE [Concomitant]
     Dosage: FREQUENCY- IN MORNING
  8. COREG [Concomitant]
     Dosage: FREQUENCY- IN EVENINGS
  9. TRICOR [Concomitant]
     Dosage: FREQUENCY- IN EVENINGS
  10. LACTIC ACID [Concomitant]
     Dosage: DOSE- 2-3 TABLETS, FREQUENCY- IN EVENINGS
  11. VITAMINS [Concomitant]
     Dosage: FREQUENCY- IN EVENINGS

REACTIONS (2)
  - Gastrointestinal disorder [Not Recovered/Not Resolved]
  - Diarrhoea [Not Recovered/Not Resolved]
